FAERS Safety Report 5125011-2 (Version None)
Quarter: 2006Q4

REPORT INFORMATION
  Report Type: 
  Country: None (occurrence: None)
  Receive Date: 20061011
  Receipt Date: 20060831
  Transmission Date: 20070319
  Serious: Yes (Other)
  Sender: FDA-Public Use
  Company Number: DE-GLAXOSMITHKLINE-D0050770A

PATIENT
  Age: 64 Year
  Sex: Female

DRUGS (2)
  1. ELMENDOS [Suspect]
     Indication: DEPRESSION
     Dosage: 75MG PER DAY
     Route: 065
     Dates: start: 20060825
  2. VENLAFAXINE HCL [Concomitant]
     Indication: DEPRESSION
     Dosage: 75MG PER DAY
     Route: 065

REACTIONS (1)
  - UROGENITAL HAEMORRHAGE [None]
